FAERS Safety Report 5693134-5 (Version None)
Quarter: 2008Q2

REPORT INFORMATION
  Report Type: 
  Country: None (occurrence: None)
  Receive Date: 20080402
  Receipt Date: 20080402
  Transmission Date: 20081010
  Serious: Yes (Life-Threatening)
  Sender: FDA-Public Use
  Company Number: None

PATIENT
  Age: 12 Year
  Sex: Female
  Weight: 54.4316 kg

DRUGS (2)
  1. SINGULAIR [Suspect]
     Indication: ASTHMA
     Dosage: 1 TABLET DAILY PO
     Route: 048
     Dates: start: 20000101, end: 20080401
  2. SINGULAIR [Suspect]
     Indication: MULTIPLE ALLERGIES
     Dosage: 1 TABLET DAILY PO
     Route: 048
     Dates: start: 20000101, end: 20080401

REACTIONS (4)
  - ABNORMAL BEHAVIOUR [None]
  - AGGRESSION [None]
  - EDUCATIONAL PROBLEM [None]
  - NEGATIVE THOUGHTS [None]
